FAERS Safety Report 23756562 (Version 2)
Quarter: 2024Q2

REPORT INFORMATION
  Report Type: Spontaneous
  Country: US (occurrence: US)
  Receive Date: 20240418
  Receipt Date: 20240425
  Transmission Date: 20240716
  Serious: Yes (Other)
  Sender: FDA-Public Use
  Company Number: US-PFIZER INC-202400084399

PATIENT
  Age: 60 Year
  Sex: Female
  Weight: 61.23 kg

DRUGS (1)
  1. PREMARIN [Suspect]
     Active Substance: ESTROGENS, CONJUGATED
     Indication: Dyspareunia
     Dosage: DAILY FOR TWO WEEKS AND THEN ONCE A WEEK APPLICATOR INTO THE VAGINAL
     Route: 067
     Dates: start: 20231219, end: 202402

REACTIONS (2)
  - Female genital tract fistula [Unknown]
  - Off label use [Unknown]

NARRATIVE: CASE EVENT DATE: 20231219
